FAERS Safety Report 19967882 (Version 5)
Quarter: 2021Q4

REPORT INFORMATION
  Report Type: Report from Study
  Country: NL (occurrence: NL)
  Receive Date: 20211019
  Receipt Date: 20211210
  Transmission Date: 20220303
  Serious: Yes (Life-Threatening, Hospitalization, Other)
  Sender: FDA-Public Use
  Company Number: NL-NOVARTISPH-NVSC2021NL232934

PATIENT
  Age: 2 Year
  Sex: Female
  Weight: 14.6 kg

DRUGS (8)
  1. TRAMETINIB [Suspect]
     Active Substance: TRAMETINIB
     Indication: Metastatic malignant melanoma
     Dosage: 0.35 MG
     Route: 065
     Dates: start: 20210317, end: 20211004
  2. TRAMETINIB [Suspect]
     Active Substance: TRAMETINIB
     Indication: Hypertrophic cardiomyopathy
  3. CEFTRIAXONE [Concomitant]
     Active Substance: CEFTRIAXONE
     Indication: Product used for unknown indication
     Dosage: UNK
     Route: 065
  4. METRONIDAZOLE [Concomitant]
     Active Substance: METRONIDAZOLE
     Indication: Product used for unknown indication
     Dosage: UNK
     Route: 065
  5. FLUCLOXACILLIN [Concomitant]
     Active Substance: FLUCLOXACILLIN
     Indication: Product used for unknown indication
     Dosage: UNK
     Route: 065
  6. ESOMEPRAZOLE [Concomitant]
     Active Substance: ESOMEPRAZOLE
     Indication: Product used for unknown indication
     Dosage: UNK
     Route: 065
  7. PROPRANOLOL HYDROCHLORIDE [Concomitant]
     Active Substance: PROPRANOLOL HYDROCHLORIDE
     Indication: Product used for unknown indication
     Dosage: 1.5 MG, TID
     Route: 065
  8. CHOLECALCIFEROL [Concomitant]
     Active Substance: CHOLECALCIFEROL
     Indication: Product used for unknown indication
     Dosage: 1 DF, QD (400 IE)
     Route: 065

REACTIONS (14)
  - Transverse sinus thrombosis [Unknown]
  - Cavernous sinus thrombosis [Unknown]
  - Cerebral venous sinus thrombosis [Unknown]
  - Melaena [Recovered/Resolved]
  - Meningitis [Recovering/Resolving]
  - Osteomyelitis [Recovering/Resolving]
  - Duodenal ulcer [Recovered/Resolved]
  - Ophthalmic vein thrombosis [Unknown]
  - Lemierre syndrome [Recovered/Resolved with Sequelae]
  - VIth nerve paresis [Not Recovered/Not Resolved]
  - Haemorrhage [Unknown]
  - Sinusitis [Unknown]
  - Otitis media [Recovering/Resolving]
  - Off label use [Unknown]

NARRATIVE: CASE EVENT DATE: 20210923
